FAERS Safety Report 7451032-0 (Version None)
Quarter: 2011Q2

REPORT INFORMATION
  Report Type: 
  Country: None (occurrence: None)
  Receive Date: 20110429
  Receipt Date: 20110429
  Transmission Date: 20111010
  Serious: Yes (Hospitalization)
  Sender: FDA-Public Use
  Company Number: None

PATIENT
  Sex: Female
  Weight: 59.4 kg

DRUGS (5)
  1. OXALIPLATIN (ELOXATIN) [Suspect]
     Dosage: 100 MG
     Dates: end: 20110318
  2. IRINOTECAN/FOLFIRI [Concomitant]
  3. BEVACIZUMAB (RHUMAB VEGF) [Suspect]
     Dosage: 300 MG
     Dates: end: 20110318
  4. FLUOROURACIL [Suspect]
     Dosage: 3600 MG
     Dates: end: 20110318
  5. LEUCOVORIN CALCIUM [Suspect]
     Dosage: 650 MG
     Dates: end: 20110318

REACTIONS (6)
  - HAEMODILUTION [None]
  - ANAEMIA [None]
  - HYPOTENSION [None]
  - DEHYDRATION [None]
  - NEUTROPENIA [None]
  - DIARRHOEA [None]
